FAERS Safety Report 6541253-3 (Version None)
Quarter: 2010Q1

REPORT INFORMATION
  Report Type: 
  Country: None (occurrence: None)
  Receive Date: 20100118
  Receipt Date: 20100111
  Transmission Date: 20100710
  Serious: Yes (Hospitalization)
  Sender: FDA-Public Use
  Company Number: US-ELI_LILLY_AND_COMPANY-US201001001884

PATIENT
  Sex: Female

DRUGS (1)
  1. BYETTA [Suspect]

REACTIONS (2)
  - DEHYDRATION [None]
  - THIRST DECREASED [None]
